FAERS Safety Report 9852303 (Version 3)
Quarter: 2014Q1

REPORT INFORMATION
  Report Type: Spontaneous
  Country: TW (occurrence: TW)
  Receive Date: 20140129
  Receipt Date: 20140312
  Transmission Date: 20141002
  Serious: Yes (Hospitalization, Disabling)
  Sender: FDA-Public Use
  Company Number: TW-NOVOPROD-398507

PATIENT
  Age: 72 Year
  Sex: Male
  Weight: 84.6 kg

DRUGS (8)
  1. NOVONORM [Suspect]
     Indication: TYPE 2 DIABETES MELLITUS
     Dosage: 6 MG, QD
     Dates: start: 20120914
  2. NOVOMIX 30 [Suspect]
     Indication: TYPE 2 DIABETES MELLITUS
     Dosage: 24 IU, QD
     Dates: start: 20131111, end: 20140123
  3. NOVOMIX 30 [Suspect]
     Dosage: 60 IU, QD
     Dates: start: 20140124
  4. GLUCOBAY [Suspect]
     Indication: TYPE 2 DIABETES MELLITUS
     Dosage: 150 MG, QD
     Dates: start: 20111012
  5. ASPIRIN [Concomitant]
     Indication: PROPHYLAXIS
     Dosage: 100.0,MG,
     Dates: start: 20140117
  6. ASPIRIN [Concomitant]
     Dosage: 200.0,MG,
     Dates: start: 20140116, end: 20140116
  7. EXFORGE [Concomitant]
     Dosage: ONCE DAILY
  8. LASIX                              /00032601/ [Concomitant]
     Dosage: ONCE DAILY

REACTIONS (3)
  - Pneumonia aspiration [Recovered/Resolved]
  - Cerebrovascular accident [Not Recovered/Not Resolved]
  - Diabetes mellitus inadequate control [Recovered/Resolved]
